FAERS Safety Report 7028401-6 (Version None)
Quarter: 2010Q4

REPORT INFORMATION
  Report Type: 
  Country: None (occurrence: None)
  Receive Date: 20101005
  Receipt Date: 20100924
  Transmission Date: 20110411
  Serious: Yes (Hospitalization)
  Sender: FDA-Public Use
  Company Number: HU-JNJFOC-20100105247

PATIENT
  Age: 53 Year
  Sex: Male
  Weight: 82 kg

DRUGS (4)
  1. REMICADE [Suspect]
     Indication: PSORIASIS
     Route: 042
  2. AMOXICILLIN AND CLAVULANATE POTASSIUM [Suspect]
     Indication: BRONCHITIS
  3. METHOTREXATE [Concomitant]
     Indication: PSORIASIS
  4. FOLIC ACID [Concomitant]
     Indication: PROPHYLAXIS

REACTIONS (2)
  - ACUTE GENERALISED EXANTHEMATOUS PUSTULOSIS [None]
  - BRONCHITIS [None]
